FAERS Safety Report 9954110 (Version 1)
Quarter: 2014Q1

REPORT INFORMATION
  Report Type: Spontaneous
  Country: FR (occurrence: FR)
  Receive Date: 20140304
  Receipt Date: 20140304
  Transmission Date: 20141002
  Serious: Yes (Death, Hospitalization)
  Sender: FDA-Public Use
  Company Number: FR-MYLANLABS-2014S1003699

PATIENT
  Age: 65 Year
  Sex: Female

DRUGS (3)
  1. ETOPOSIDE [Suspect]
     Indication: OVARIAN CANCER
     Route: 042
     Dates: start: 201311
  2. CISPLATINE [Suspect]
     Indication: OVARIAN CANCER
     Route: 042
     Dates: start: 201311
  3. BLEOMYCIN [Suspect]
     Indication: OVARIAN CANCER
     Route: 042
     Dates: start: 201311

REACTIONS (1)
  - Pulmonary fibrosis [Fatal]
